FAERS Safety Report 8499192-7 (Version None)
Quarter: 2012Q2

REPORT INFORMATION
  Report Type: 
  Country: None (occurrence: None)
  Receive Date: 20120405
  Receipt Date: 20100623
  Transmission Date: 20120825
  Serious: Yes (Hospitalization, Other)
  Sender: FDA-Public Use
  Company Number: PHHY2010US41775

PATIENT
  Age: 75 Year
  Sex: Female

DRUGS (3)
  1. MOTRIN [Concomitant]
  2. RECLAST [Suspect]
     Dosage: INFUSION
     Dates: start: 20100604
  3. PRILOSEC [Concomitant]

REACTIONS (2)
  - DIARRHOEA [None]
  - ABDOMINAL PAIN [None]
